FAERS Safety Report 18651820 (Version 1)
Quarter: 2020Q4

REPORT INFORMATION
  Report Type: Spontaneous
  Country: US (occurrence: US)
  Receive Date: 20201223
  Receipt Date: 20201223
  Transmission Date: 20210114
  Serious: No
  Sender: FDA-Public Use
  Company Number: US-JNJFOC-20201220494

PATIENT
  Sex: Male

DRUGS (1)
  1. MENS ROGAINE EXTRA STRENGTH [Suspect]
     Active Substance: MINOXIDIL
     Indication: ALOPECIA
     Dosage: ONCE DAILY BUT SOMETIMES DIDN^T APPLY IT?PRODUCT LAST USED DATE: 06/DEC/2020
     Route: 061
     Dates: start: 202011

REACTIONS (2)
  - Inappropriate schedule of product administration [Unknown]
  - Alopecia [Not Recovered/Not Resolved]
